FAERS Safety Report 4336417-3 (Version None)
Quarter: 2004Q2

REPORT INFORMATION
  Report Type: 
  Country: None (occurrence: None)
  Receive Date: 20040407
  Receipt Date: 20040322
  Transmission Date: 20050107
  Serious: Yes (Other)
  Sender: FDA-Public Use
  Company Number: US012887

PATIENT
  Age: 39 Year
  Sex: Male
  Weight: 54.4316 kg

DRUGS (3)
  1. ACTIQ [Suspect]
     Indication: BACK PAIN
     Dosage: 600 UG Q3HR BUCCAL
     Route: 002
     Dates: start: 20040315, end: 20040315
  2. PERCOCET [Concomitant]
  3. XANAX [Concomitant]

REACTIONS (4)
  - BRAIN HYPOXIA [None]
  - CONVULSION [None]
  - MEDICATION ERROR [None]
  - SKIN INDURATION [None]
